FAERS Safety Report 4569480-5 (Version None)
Quarter: 2005Q1

REPORT INFORMATION
  Report Type: 
  Country: None (occurrence: None)
  Receive Date: 20050203
  Receipt Date: 20050125
  Transmission Date: 20050727
  Serious: Yes (Hospitalization)
  Sender: FDA-Public Use
  Company Number: US-JNJFOC-20050106168

PATIENT
  Age: 58 Year
  Sex: Male

DRUGS (5)
  1. DURAGESIC [Suspect]
     Route: 062
     Dates: start: 20020101, end: 20050117
  2. VICODIN [Concomitant]
     Route: 049
  3. VICODIN [Concomitant]
     Indication: PAIN
     Route: 049
  4. VALIUM [Concomitant]
     Indication: ANXIETY
     Route: 049
  5. SKELAXIN [Concomitant]
     Route: 049

REACTIONS (8)
  - APPLICATION SITE IRRITATION [None]
  - APPLICATION SITE PAIN [None]
  - COLD SWEAT [None]
  - DYSGEUSIA [None]
  - HYPERHIDROSIS [None]
  - NAUSEA [None]
  - OVERDOSE [None]
  - VOMITING [None]
